FAERS Safety Report 21446851 (Version 1)
Quarter: 2022Q4

REPORT INFORMATION
  Report Type: Spontaneous
  Country: US (occurrence: None)
  Receive Date: 20221011
  Receipt Date: 20221011
  Transmission Date: 20230112
  Serious: Yes (Hospitalization)
  Sender: FDA-Public Use
  Company Number: None

PATIENT
  Age: 88 Year
  Sex: Female
  Weight: 65.95 kg

DRUGS (3)
  1. CAPECITABINE [Suspect]
     Active Substance: CAPECITABINE
     Indication: Gastric cancer
     Dosage: OTHER FREQUENCY : 2W,1WOFF;?
     Route: 046
  2. KEYTRUDA [Concomitant]
  3. OXALIPLATIN [Concomitant]

REACTIONS (3)
  - Hypophagia [None]
  - Asthenia [None]
  - Dehydration [None]
